FAERS Safety Report 7701671-4 (Version None)
Quarter: 2011Q3

REPORT INFORMATION
  Report Type: 
  Country: None (occurrence: None)
  Receive Date: 20110822
  Receipt Date: 20110812
  Transmission Date: 20111222
  Serious: Yes (Other)
  Sender: FDA-Public Use
  Company Number: DE-ASTRAZENECA-2011SE41820

PATIENT
  Age: 26 Year
  Sex: Male

DRUGS (3)
  1. SEROQUEL XR [Suspect]
     Indication: SCHIZOAFFECTIVE DISORDER
     Route: 048
     Dates: start: 20110124, end: 20110601
  2. SEROQUEL XR [Suspect]
     Indication: MOOD ALTERED
     Route: 048
     Dates: start: 20110124, end: 20110601
  3. RISPERIDONE [Concomitant]
     Indication: SCHIZOAFFECTIVE DISORDER
     Dosage: 4 MG DECREASED TO 1 MG
     Route: 048
     Dates: start: 20080101, end: 20110601

REACTIONS (2)
  - BREAST MASS [None]
  - BLOOD PROLACTIN INCREASED [None]
